FAERS Safety Report 13333646 (Version 2)
Quarter: 2017Q2

REPORT INFORMATION
  Report Type: Report from Study
  Country: BR (occurrence: BR)
  Receive Date: 20170313
  Receipt Date: 20170607
  Transmission Date: 20170830
  Serious: Yes (Other)
  Sender: FDA-Public Use
  Company Number: PHHY2017BR036477

PATIENT
  Sex: Female
  Weight: 58 kg

DRUGS (3)
  1. ACLASTA [Suspect]
     Active Substance: ZOLEDRONIC ACID
     Indication: OSTEOPOROSIS
     Dosage: UNK UNK, Q12MO (2 YEARS AGO)
     Route: 042
  2. ACLASTA [Suspect]
     Active Substance: ZOLEDRONIC ACID
     Dosage: 5 MG, Q12MO
     Route: 042
     Dates: start: 20160218
  3. LETROZOLE. [Concomitant]
     Active Substance: LETROZOLE
     Indication: BONE DENSITY DECREASED
     Dosage: 1 DF, QD (3 YEARS AGO)
     Route: 048

REACTIONS (6)
  - Breast cancer [Unknown]
  - Myalgia [Unknown]
  - Paralysis [Unknown]
  - Tooth disorder [Unknown]
  - Fear [Unknown]
  - Uterine cancer [Unknown]

NARRATIVE: CASE EVENT DATE: 2014
